FAERS Safety Report 23482234 (Version 3)
Quarter: 2024Q1

REPORT INFORMATION
  Report Type: Spontaneous
  Country: US (occurrence: US)
  Receive Date: 20240205
  Receipt Date: 20240227
  Transmission Date: 20240410
  Serious: No
  Sender: FDA-Public Use
  Company Number: US-OPELLA-2024OHG002911

PATIENT
  Age: 35 Year
  Sex: Female

DRUGS (2)
  1. ALLEGRA ALLERGY [Suspect]
     Active Substance: FEXOFENADINE HYDROCHLORIDE
     Indication: Product used for unknown indication
     Dates: start: 20240115, end: 20240115
  2. ALLEGRA [Suspect]
     Active Substance: FEXOFENADINE HYDROCHLORIDE
     Indication: Respiratory disorder
     Dates: start: 20240129

REACTIONS (3)
  - Product confusion [Unknown]
  - Extra dose administered [Unknown]
  - No adverse event [Unknown]

NARRATIVE: CASE EVENT DATE: 20240129
